FAERS Safety Report 14955620 (Version 1)
Quarter: 2018Q2

REPORT INFORMATION
  Report Type: Spontaneous
  Country: IE (occurrence: IE)
  Receive Date: 20180531
  Receipt Date: 20180531
  Transmission Date: 20180711
  Serious: Yes (Other)
  Sender: FDA-Public Use
  Company Number: IE-AMGEN-IRLSP2018071640

PATIENT
  Age: 82 Year
  Sex: Female

DRUGS (17)
  1. PERINDOPRIL [Concomitant]
     Active Substance: PERINDOPRIL
     Dosage: 5 MG, UNK
  2. RHINOCORT [Concomitant]
     Active Substance: BUDESONIDE
     Dosage: 200 DOSE
  3. FELDENE [Concomitant]
     Active Substance: PIROXICAM
     Dosage: 5 MG/G, TID (APPLY 3 TIMES DAILY)
  4. ESOMEPRAZOLE [Concomitant]
     Active Substance: ESOMEPRAZOLE
     Dosage: 20 MG, UNK
  5. AMLODE [Concomitant]
     Active Substance: AMLODIPINE BESYLATE
     Dosage: 5 MG, UNK
  6. HYDROCORTISYL [Concomitant]
     Dosage: 1 %, QD (APPLY DAILY)
  7. SYMBICORT [Concomitant]
     Active Substance: BUDESONIDE\FORMOTEROL FUMARATE DIHYDRATE
     Dosage: 400 MCG/12MCG, BID (200/6 - 1 PUFF TWICE DAILY)
  8. SEEBRI BREEZHALER [Concomitant]
     Active Substance: GLYCOPYRROLATE
     Dosage: 0.063 MG, UNK
  9. ETOFLAM [Concomitant]
     Dosage: 5% W/W GEL
  10. PROLIA [Suspect]
     Active Substance: DENOSUMAB
     Indication: PRODUCT USED FOR UNKNOWN INDICATION
     Dosage: 60 MG, UNK
     Route: 058
     Dates: start: 20171107
  11. PARACETAMOL [Concomitant]
     Active Substance: ACETAMINOPHEN
     Dosage: 500 MG, (TAKE 2 TABLETS 4 TIMES DAILY)
     Route: 048
  12. FORSTEO [Concomitant]
     Active Substance: TERIPARATIDE
     Dosage: 2.4 ML, (20MCG/80MCL)
     Route: 058
  13. MOVICOL [Concomitant]
     Active Substance: POLYETHYLENE GLYCOL 3350\POTASSIUM CHLORIDE\SODIUM BICARBONATE\SODIUM CHLORIDE
     Dosage: 13.125 G/ 0.0466G/0.1785G/0.3507G, UNK
  14. VERSATIS [Concomitant]
     Active Substance: LIDOCAINE
     Dosage: 700 MG, (TAKE 2 AT A TIME AS REQUIRED)
  15. SINGULAIR [Concomitant]
     Active Substance: MONTELUKAST SODIUM
     Dosage: 10 MG, (NOCTE)
     Route: 048
  16. ASPIRIN. [Concomitant]
     Active Substance: ASPIRIN
     Dosage: 75 MG, QOD
  17. NEOCLARITYN [Concomitant]
     Active Substance: DESLORATADINE
     Dosage: UNK

REACTIONS (1)
  - Skin ulcer [Recovered/Resolved]

NARRATIVE: CASE EVENT DATE: 20171117
